FAERS Safety Report 14088487 (Version 1)
Quarter: 2017Q4

REPORT INFORMATION
  Report Type: Spontaneous
  Country: DE (occurrence: DE)
  Receive Date: 20171013
  Receipt Date: 20171013
  Transmission Date: 20180321
  Serious: Yes (Hospitalization, Other)
  Sender: FDA-Public Use
  Company Number: DE-US WORLDMEDS, LLC-USW201710-001440

PATIENT
  Age: 76 Year
  Sex: Male

DRUGS (7)
  1. PERGOLIDE [Concomitant]
     Active Substance: PERGOLIDE
     Indication: PARKINSON^S DISEASE
  2. ENTACAPONE. [Concomitant]
     Active Substance: ENTACAPONE
     Indication: PARKINSON^S DISEASE
  3. L-DOPA/BENSERAZIDE [Concomitant]
  4. APOMORPHINE HYDROCHLORIDE [Suspect]
     Active Substance: APOMORPHINE HYDROCHLORIDE
     Indication: PARKINSON^S DISEASE
     Route: 058
  5. L-DOPA/BENSERAZIDE [Concomitant]
     Indication: PARKINSON^S DISEASE
  6. ENTACAPONE. [Concomitant]
     Active Substance: ENTACAPONE
  7. PHENYTOIN. [Concomitant]
     Active Substance: PHENYTOIN
     Indication: SEIZURE

REACTIONS (4)
  - Akinesia [Recovering/Resolving]
  - Abdominal wall haematoma [Unknown]
  - Skin necrosis [Unknown]
  - Anaemia [Recovered/Resolved]
